FAERS Safety Report 8042771-1 (Version None)
Quarter: 2011Q4

REPORT INFORMATION
  Report Type: 
  Country: None (occurrence: None)
  Receive Date: 20111209
  Receipt Date: 20111128
  Transmission Date: 20120403
  Serious: Yes (Other)
  Sender: FDA-Public Use
  Company Number: SPV1-2010-01895

PATIENT
  Age: 12 Year
  Sex: Male
  Weight: 24 kg

DRUGS (1)
  1. ADDERALL 10 [Suspect]
     Indication: DISTURBANCE IN ATTENTION
     Dosage: 15 MG, 1X/DAY: QD, ORAL
     Route: 048

REACTIONS (7)
  - NEGATIVISM [None]
  - DRUG EFFECT DECREASED [None]
  - DEPRESSION [None]
  - LOGORRHOEA [None]
  - DISTURBANCE IN SOCIAL BEHAVIOUR [None]
  - IMPULSIVE BEHAVIOUR [None]
  - INSOMNIA [None]
